FAERS Safety Report 17147713 (Version 1)
Quarter: 2019Q4

REPORT INFORMATION
  Report Type: Report from Study
  Country: FR (occurrence: FR)
  Receive Date: 20191212
  Receipt Date: 20191212
  Transmission Date: 20200122
  Serious: Yes (Other)
  Sender: FDA-Public Use
  Company Number: FR-ELI_LILLY_AND_COMPANY-FR201912002611

PATIENT
  Age: 62 Year
  Sex: Male

DRUGS (2)
  1. CETUXIMAB. [Suspect]
     Active Substance: CETUXIMAB
     Dosage: 250 MG/M2
     Route: 065
     Dates: start: 20190311
  2. CETUXIMAB. [Suspect]
     Active Substance: CETUXIMAB
     Indication: SQUAMOUS CELL CARCINOMA OF HEAD AND NECK
     Dosage: 400 MG/M2
     Route: 065
     Dates: start: 20190304

REACTIONS (8)
  - Pneumonia [Recovering/Resolving]
  - Hepatocellular injury [Recovering/Resolving]
  - Bronchitis [Recovering/Resolving]
  - Dysphagia [Recovering/Resolving]
  - Acute kidney injury [Recovering/Resolving]
  - Hypophagia [Recovering/Resolving]
  - Mucosal inflammation [Recovering/Resolving]
  - Hypovolaemic shock [Recovering/Resolving]

NARRATIVE: CASE EVENT DATE: 20190409
